FAERS Safety Report 10338119 (Version 2)
Quarter: 2014Q3

REPORT INFORMATION
  Report Type: Spontaneous
  Country: US (occurrence: US)
  Receive Date: 20140724
  Receipt Date: 20140919
  Transmission Date: 20150326
  Serious: Yes (Death, Hospitalization)
  Sender: FDA-Public Use
  Company Number: US-JNJFOC-20140711525

PATIENT
  Sex: Male
  Weight: 65.77 kg

DRUGS (1)
  1. XARELTO [Suspect]
     Active Substance: RIVAROXABAN
     Indication: DEEP VEIN THROMBOSIS
     Route: 048
     Dates: start: 20140602, end: 20140630

REACTIONS (4)
  - Hepatic cancer metastatic [Fatal]
  - Cerebral thrombosis [Fatal]
  - Hypercoagulation [Fatal]
  - Deep vein thrombosis [Unknown]
